FAERS Safety Report 5352303-4 (Version None)
Quarter: 2007Q2

REPORT INFORMATION
  Report Type: 
  Country: None (occurrence: None)
  Receive Date: 20070607
  Receipt Date: 20070531
  Transmission Date: 20071010
  Serious: Yes (Hospitalization)
  Sender: FDA-Public Use
  Company Number: 163-21880-06070374

PATIENT
  Age: 77 Year
  Sex: Male

DRUGS (5)
  1. REVLIMID [Suspect]
     Indication: MULTIPLE MYELOMA
     Dosage: 15 MG, X 21 DAYS; 7 DAYS OFF, ORAL
     Route: 048
     Dates: start: 20070122, end: 20070409
  2. REVLIMID [Suspect]
     Indication: MULTIPLE MYELOMA
     Dosage: 15 MG, X 21 DAYS; 7 DAYS OFF, ORAL
     Route: 048
     Dates: start: 20070423
  3. REVLIMID [Suspect]
  4. COUMADIN [Concomitant]
  5. ATENOLOL [Concomitant]

REACTIONS (3)
  - DIARRHOEA [None]
  - FATIGUE [None]
  - VIRAL INFECTION [None]
